FAERS Safety Report 15361409 (Version 1)
Quarter: 2018Q3

REPORT INFORMATION
  Report Type: Spontaneous
  Country: DE (occurrence: DE)
  Receive Date: 20180907
  Receipt Date: 20180907
  Transmission Date: 20181010
  Serious: Yes (Hospitalization)
  Sender: FDA-Public Use
  Company Number: PHHY2016DE187217

PATIENT
  Age: 76 Year
  Sex: Female
  Weight: 54.7 kg

DRUGS (18)
  1. PACLITAXEL. [Suspect]
     Active Substance: PACLITAXEL
     Indication: PRODUCT USED FOR UNKNOWN INDICATION
     Dosage: 285 MG, Q3W
     Route: 042
     Dates: start: 20160908
  2. PACLITAXEL. [Suspect]
     Active Substance: PACLITAXEL
     Dosage: 285 MG, Q3W
     Route: 042
     Dates: start: 20161229
  3. BEVACIZUMAB. [Suspect]
     Active Substance: BEVACIZUMAB
     Dosage: 810 MG, Q3W
     Route: 042
     Dates: start: 20170127
  4. PACLITAXEL. [Suspect]
     Active Substance: PACLITAXEL
     Dosage: 285 MG, Q3W
     Route: 042
     Dates: start: 20160929
  5. CARBOPLATIN. [Suspect]
     Active Substance: CARBOPLATIN
     Dosage: 375 MG, Q3W
     Route: 042
     Dates: start: 20161229
  6. PACLITAXEL. [Suspect]
     Active Substance: PACLITAXEL
     Dosage: 285 MG, Q3W
     Route: 042
     Dates: start: 20161201
  7. CARBOPLATIN. [Suspect]
     Active Substance: CARBOPLATIN
     Dosage: 375 MG, Q3W
     Route: 042
     Dates: start: 20161201
  8. BEVACIZUMAB. [Suspect]
     Active Substance: BEVACIZUMAB
     Dosage: 810 MG, Q3W
     Route: 042
     Dates: start: 20161028
  9. PACLITAXEL. [Suspect]
     Active Substance: PACLITAXEL
     Dosage: 285 MG, Q3W
     Route: 042
     Dates: start: 20161110
  10. CARBOPLATIN. [Suspect]
     Active Substance: CARBOPLATIN
     Dosage: 375 MG, Q3W
     Route: 042
     Dates: start: 20160929
  11. EFEROX [Concomitant]
     Active Substance: LEVOTHYROXINE SODIUM
     Indication: HYPOTHYROIDISM
     Dosage: 1 DF, QD
     Route: 048
  12. CARBOPLATIN. [Suspect]
     Active Substance: CARBOPLATIN
     Dosage: 375 MG, Q3W
     Route: 042
     Dates: start: 20161020
  13. BEVACIZUMAB. [Suspect]
     Active Substance: BEVACIZUMAB
     Indication: OVARIAN CANCER
     Dosage: 810 MG, Q3W
     Route: 042
     Dates: start: 20160923
  14. BEVACIZUMAB. [Suspect]
     Active Substance: BEVACIZUMAB
     Dosage: 810 MG, Q3W
     Route: 042
     Dates: start: 20161104
  15. PACLITAXEL. [Suspect]
     Active Substance: PACLITAXEL
     Dosage: 285 MG, Q3W
     Route: 042
     Dates: start: 20161020
  16. CARBOPLATIN. [Suspect]
     Active Substance: CARBOPLATIN
     Indication: PRODUCT USED FOR UNKNOWN INDICATION
     Dosage: 375 MG, Q3W
     Route: 042
     Dates: start: 20160908
  17. CARBOPLATIN. [Suspect]
     Active Substance: CARBOPLATIN
     Dosage: 375 MG, Q3W
     Route: 042
     Dates: start: 20161110
  18. BEVACIZUMAB. [Suspect]
     Active Substance: BEVACIZUMAB
     Dosage: 810 MG, Q3W
     Route: 042
     Dates: start: 20161216

REACTIONS (8)
  - Syncope [Unknown]
  - Blood pressure increased [Recovered/Resolved]
  - Abdominal pain [Recovered/Resolved]
  - Headache [Recovered/Resolved]
  - Athetosis [Recovered/Resolved]
  - Partial seizures [Recovered/Resolved]
  - Fatigue [Not Recovered/Not Resolved]
  - Fall [Unknown]

NARRATIVE: CASE EVENT DATE: 20160923
